FAERS Safety Report 9846860 (Version 2)
Quarter: 2014Q1

REPORT INFORMATION
  Report Type: Spontaneous
  Country: JP (occurrence: JP)
  Receive Date: 20140127
  Receipt Date: 20140131
  Transmission Date: 20141002
  Serious: Yes (Hospitalization)
  Sender: FDA-Public Use
  Company Number: JP-PFIZER INC-2014021583

PATIENT
  Age: 92 Year
  Sex: Female

DRUGS (1)
  1. CELECOX [Suspect]
     Dosage: 100 MG, 2X/DAY
     Route: 048
     Dates: start: 20140110, end: 20140116

REACTIONS (1)
  - Interstitial lung disease [Recovered/Resolved]
